FAERS Safety Report 8817945 (Version 1)
Quarter: 2012Q4

REPORT INFORMATION
  Report Type: 
  Country: SE (occurrence: SE)
  Receive Date: 20121001
  Receipt Date: 20121001
  Transmission Date: 20130627
  Serious: Yes (Other)
  Sender: FDA-Public Use
  Company Number: SE-ASTRAZENECA-2012SE73308

PATIENT
  Sex: Female

DRUGS (2)
  1. ATACAND [Suspect]
     Route: 048
  2. WARAN [Suspect]
     Dosage: COMBINATION PACKAGE
     Route: 065

REACTIONS (2)
  - Cerebral haemorrhage [Unknown]
  - Hallucination [Unknown]
